FAERS Safety Report 25090610 (Version 1)
Quarter: 2025Q1

REPORT INFORMATION
  Report Type: Spontaneous
  Country: US (occurrence: US)
  Receive Date: 20250318
  Receipt Date: 20250318
  Transmission Date: 20250408
  Serious: No
  Sender: ENDO
  Company Number: US-ENDO USA, INC.-2024-002048

PATIENT
  Age: 70 Year
  Sex: Female
  Weight: 67.12 kg

DRUGS (2)
  1. XIAFLEX [Suspect]
     Active Substance: COLLAGENASE CLOSTRIDIUM HISTOLYTICUM
     Indication: Dupuytren^s contracture
     Route: 051
     Dates: start: 20240429
  2. LOSARTAN [Concomitant]
     Active Substance: LOSARTAN
     Indication: Product used for unknown indication
     Route: 065

REACTIONS (5)
  - Hypertension [Unknown]
  - Lymphadenopathy [Unknown]
  - Pain in extremity [Unknown]
  - Axillary pain [Unknown]
  - Peripheral swelling [Not Recovered/Not Resolved]

NARRATIVE: CASE EVENT DATE: 20240429
